FAERS Safety Report 15684916 (Version 1)
Quarter: 2018Q4

REPORT INFORMATION
  Report Type: Spontaneous
  Country: US (occurrence: US)
  Receive Date: 20181204
  Receipt Date: 20181204
  Transmission Date: 20190205
  Serious: Yes (Hospitalization)
  Sender: FDA-Public Use
  Company Number: US-LPDUSPRD-20182284

PATIENT
  Sex: Female

DRUGS (1)
  1. METHYLERGONOVINE MALEATE INJECTION, USP (0740-20) [Suspect]
     Active Substance: METHYLERGONOVINE MALEATE
     Dosage: 0.2 MG
     Route: 065

REACTIONS (5)
  - Product administered to patient of inappropriate age [Unknown]
  - Wrong product administered [Unknown]
  - Seizure like phenomena [Recovered/Resolved]
  - Posturing [Recovered/Resolved]
  - Hypertension neonatal [Recovered/Resolved]
